FAERS Safety Report 14769971 (Version 2)
Quarter: 2018Q2

REPORT INFORMATION
  Report Type: Spontaneous
  Country: CZ (occurrence: CZ)
  Receive Date: 20180417
  Receipt Date: 20180620
  Transmission Date: 20180711
  Serious: Yes (Other)
  Sender: FDA-Public Use
  Company Number: CZ-BAUSCH-BL-2018-010817

PATIENT
  Age: 49 Year
  Sex: Female

DRUGS (4)
  1. OXALIPLATIN. [Suspect]
     Active Substance: OXALIPLATIN
     Indication: RECTAL ADENOCARCINOMA
     Dosage: THERAPY DURATION: 1 YEAR 7 MONTHS 5 DAYS 12 HRS
     Route: 065
     Dates: start: 201605, end: 201712
  2. PANITUMUMAB [Suspect]
     Active Substance: PANITUMUMAB
     Indication: RECTAL ADENOCARCINOMA
     Dosage: THERAPY DURATION: 1 YEAR 7 MONTHS 5 DAYS 12 HRS
     Route: 065
     Dates: start: 201605, end: 201712
  3. FLUOROURACIL. [Suspect]
     Active Substance: FLUOROURACIL
     Indication: RECTAL ADENOCARCINOMA
     Dosage: THERAPY DURATION: 1 YEAR 7 MONTHS 5 DAYS 12 HRS
     Route: 065
     Dates: start: 201605, end: 201712
  4. FOLINIC ACID [Suspect]
     Active Substance: LEUCOVORIN
     Indication: RECTAL ADENOCARCINOMA
     Dosage: THERAPY DURATION: 1 YEAR 7 MONTHS 5 DAYS 12 HRS
     Route: 065
     Dates: start: 201605, end: 201712

REACTIONS (3)
  - Dermatitis acneiform [Unknown]
  - Polyneuropathy [Not Recovered/Not Resolved]
  - Leukopenia [Unknown]
